FAERS Safety Report 15335381 (Version 1)
Quarter: 2018Q3

REPORT INFORMATION
  Report Type: Spontaneous
  Country: HR (occurrence: HR)
  Receive Date: 20180830
  Receipt Date: 20180830
  Transmission Date: 20181010
  Serious: Yes (Other)
  Sender: FDA-Public Use
  Company Number: HR-PFIZER INC-2018343255

PATIENT
  Age: 58 Year
  Sex: Male

DRUGS (2)
  1. Q PIN [Suspect]
     Active Substance: QUETIAPINE FUMARATE
     Dosage: UNK
     Route: 048
     Dates: start: 20180508, end: 20180508
  2. XANAX [Suspect]
     Active Substance: ALPRAZOLAM
     Dosage: 100 MG, 1X/DAY
     Route: 048
     Dates: start: 20180508, end: 20180508

REACTIONS (3)
  - Suicide attempt [Unknown]
  - Intentional overdose [Unknown]
  - Sopor [Unknown]

NARRATIVE: CASE EVENT DATE: 20180508
